FAERS Safety Report 4788103-3 (Version None)
Quarter: 2005Q4

REPORT INFORMATION
  Report Type: 
  Country: None (occurrence: None)
  Receive Date: 20051003
  Receipt Date: 20050926
  Transmission Date: 20060501
  Serious: Yes (Hospitalization)
  Sender: FDA-Public Use
  Company Number: 2003-04-2343

PATIENT
  Age: 64 Year
  Sex: Male
  Weight: 50 kg

DRUGS (10)
  1. INTRON A [Suspect]
     Indication: HEPATITIS C
     Dosage: SEE IMAGE
     Route: 030
     Dates: start: 20020624, end: 20020707
  2. INTRON A [Suspect]
     Indication: HEPATITIS C
     Dosage: SEE IMAGE
     Route: 030
     Dates: start: 20020624, end: 20021208
  3. INTRON A [Suspect]
     Indication: HEPATITIS C
     Dosage: SEE IMAGE
     Route: 030
     Dates: start: 20020708, end: 20021208
  4. REBETOL [Suspect]
     Indication: HEPATITIS C
     Dosage: 600 MG QD ORAL
     Route: 048
     Dates: start: 20020624, end: 20021208
  5. CLARITIN [Concomitant]
  6. JUVELA [Concomitant]
  7. ASCORBIC ACID [Concomitant]
  8. TAGAMET [Concomitant]
  9. PRIMPERAN INJ [Concomitant]
  10. SELBEX [Concomitant]

REACTIONS (3)
  - EPSTEIN-BARR VIRUS INFECTION [None]
  - PERIPHERAL T-CELL LYMPHOMA UNSPECIFIED [None]
  - THROMBOCYTOPENIA [None]
